FAERS Safety Report 7765880-0 (Version None)
Quarter: 2011Q3

REPORT INFORMATION
  Report Type: 
  Country: None (occurrence: None)
  Receive Date: 20110921
  Receipt Date: 20110908
  Transmission Date: 20111222
  Serious: Yes (Hospitalization, Other)
  Sender: FDA-Public Use
  Company Number: IE-ELI_LILLY_AND_COMPANY-IE201108003645

PATIENT
  Sex: Female
  Weight: 66.68 kg

DRUGS (3)
  1. DULOXETIME HYDROCHLORIDE [Suspect]
     Dosage: 20 MG, SINGLE
  2. DULOXETIME HYDROCHLORIDE [Suspect]
     Dosage: 20 MG, SINGLE
  3. DULOXETIME HYDROCHLORIDE [Suspect]
     Indication: URINARY INCONTINENCE
     Dosage: 20 MG, SINGLE

REACTIONS (6)
  - NAUSEA [None]
  - LETHARGY [None]
  - VOMITING [None]
  - DIZZINESS [None]
  - HYPOTENSION [None]
  - SYNCOPE [None]
